FAERS Safety Report 4750148-7 (Version None)
Quarter: 2005Q3

REPORT INFORMATION
  Report Type: 
  Country: None (occurrence: None)
  Receive Date: 20050819
  Receipt Date: 20050810
  Transmission Date: 20060218
  Serious: Yes (Other)
  Sender: FDA-Public Use
  Company Number: 2005113598

PATIENT
  Sex: Female

DRUGS (1)
  1. DEPO-PROVERA [Suspect]
     Indication: ILL-DEFINED DISORDER

REACTIONS (2)
  - PRECANCEROUS CELLS PRESENT [None]
  - SMEAR CERVIX ABNORMAL [None]
